FAERS Safety Report 15976946 (Version 1)
Quarter: 2019Q1

REPORT INFORMATION
  Report Type: Spontaneous
  Country: ES (occurrence: ES)
  Receive Date: 20190218
  Receipt Date: 20190218
  Transmission Date: 20190418
  Serious: Yes (Hospitalization, Other)
  Sender: FDA-Public Use
  Company Number: ES-UNICHEM PHARMACEUTICALS (USA) INC-UCM201902-000062

PATIENT
  Age: 31 Year
  Sex: Female

DRUGS (9)
  1. DIAZEPAM. [Concomitant]
     Active Substance: DIAZEPAM
     Indication: ANXIETY
  2. DIAZEPAM. [Concomitant]
     Active Substance: DIAZEPAM
  3. TIZANIDINE. [Suspect]
     Active Substance: TIZANIDINE
  4. SERTRALINE [Concomitant]
     Active Substance: SERTRALINE HYDROCHLORIDE
     Indication: DEPRESSION
  5. TIZANIDINE. [Suspect]
     Active Substance: TIZANIDINE
  6. TIZANIDINE. [Suspect]
     Active Substance: TIZANIDINE
     Indication: NECK PAIN
  7. TIZANIDINE. [Suspect]
     Active Substance: TIZANIDINE
  8. TIZANIDINE. [Suspect]
     Active Substance: TIZANIDINE
  9. TIZANIDINE. [Suspect]
     Active Substance: TIZANIDINE

REACTIONS (11)
  - Hypertension [Recovered/Resolved]
  - Medication error [Unknown]
  - Hyperthermia [Recovered/Resolved]
  - Nausea [Recovered/Resolved]
  - Vomiting [Recovered/Resolved]
  - Drug withdrawal syndrome [Recovered/Resolved]
  - Haemodynamic instability [Recovered/Resolved]
  - Tachypnoea [Recovered/Resolved]
  - Tremor [Recovered/Resolved]
  - Anxiety [Recovered/Resolved]
  - Tachycardia [Recovered/Resolved]
